FAERS Safety Report 13627060 (Version 1)
Quarter: 2017Q2

REPORT INFORMATION
  Report Type: Spontaneous
  Country: FR (occurrence: FR)
  Receive Date: 20170608
  Receipt Date: 20170608
  Transmission Date: 20170830
  Serious: Yes (Death)
  Sender: FDA-Public Use
  Company Number: FR-TEVA-775138ROM

PATIENT
  Age: 62 Year
  Sex: Female

DRUGS (8)
  1. KARDEGIC [Concomitant]
     Active Substance: ASPIRIN LYSINE
     Dosage: 1 DOSAGE FORMS DAILY; DAILY DOSE:1 DOSAGE FORM;1 DF IN THE NOON
  2. MOVICOL [Concomitant]
     Active Substance: POLYETHYLENE GLYCOL 3350\POTASSIUM CHLORIDE\SODIUM BICARBONATE\SODIUM CHLORIDE
  3. ALLOPURINOL. [Concomitant]
     Active Substance: ALLOPURINOL
  4. CARBOPLATINE HOSPIRA [Suspect]
     Active Substance: CARBOPLATIN
     Indication: NEUROENDOCRINE TUMOUR
     Dosage: CARBOPLATINE-ETOPOSIDE/V2015 PROTOCOL, COURSE 1, DAY 1
     Route: 042
     Dates: start: 20160830, end: 20160830
  5. SPIRIVA [Concomitant]
     Active Substance: TIOTROPIUM BROMIDE MONOHYDRATE
  6. AMLOR [Concomitant]
     Active Substance: AMLODIPINE BESYLATE
  7. ETOPOSIDE TEVA [Suspect]
     Active Substance: ETOPOSIDE
     Indication: NEUROENDOCRINE TUMOUR
     Dosage: CARBOPLATINE-ETOPOSIDE/V2015 PROTOCOL, COURSE 1, DAY 1, DAY 2, DAY 3
     Route: 042
     Dates: start: 20160830, end: 20160901
  8. INEXIUM 40 MG [Concomitant]
     Active Substance: ESOMEPRAZOLE
     Dosage: 1 DOSAGE FORMS DAILY; DAILY DOSE: 1 DOSAGE FORM;1 DF IN THE EVENING

REACTIONS (1)
  - Febrile bone marrow aplasia [Fatal]

NARRATIVE: CASE EVENT DATE: 201609
